FAERS Safety Report 17712481 (Version 2)
Quarter: 2020Q2

REPORT INFORMATION
  Report Type: Spontaneous
  Country: NG (occurrence: NG)
  Receive Date: 20200427
  Receipt Date: 20200518
  Transmission Date: 20200714
  Serious: Yes (Hospitalization, Other)
  Sender: FDA-Public Use
  Company Number: NG-JNJFOC-20200426108

PATIENT
  Age: 18 Year
  Sex: Male
  Weight: 85 kg

DRUGS (7)
  1. RISPERDAL [Suspect]
     Active Substance: RISPERIDONE
     Indication: SCHIZOPHRENIA
     Route: 048
  2. CARBAMAZEPINE. [Concomitant]
     Active Substance: CARBAMAZEPINE
     Indication: NEUROPATHY PERIPHERAL
  3. INVEGA SUSTENNA [Suspect]
     Active Substance: PALIPERIDONE PALMITATE
  4. RISPERDAL [Suspect]
     Active Substance: RISPERIDONE
     Dosage: AT NIGHT
     Route: 048
  5. QUETIAPINE. [Concomitant]
     Active Substance: QUETIAPINE
     Indication: SCHIZOPHRENIA
  6. INVEGA SUSTENNA [Suspect]
     Active Substance: PALIPERIDONE PALMITATE
     Indication: SCHIZOPHRENIA
     Route: 030
  7. INVEGA SUSTENNA [Suspect]
     Active Substance: PALIPERIDONE PALMITATE

REACTIONS (3)
  - Erectile dysfunction [Not Recovered/Not Resolved]
  - Akathisia [Recovering/Resolving]
  - Suicidal ideation [Not Recovered/Not Resolved]
